FAERS Safety Report 25238485 (Version 1)
Quarter: 2025Q2

REPORT INFORMATION
  Report Type: Spontaneous
  Country: FR (occurrence: FR)
  Receive Date: 20250425
  Receipt Date: 20250425
  Transmission Date: 20250717
  Serious: Yes (Other)
  Sender: AUROBINDO
  Company Number: FR-AFSSAPS-LM2025000260

PATIENT
  Age: 42 Year
  Sex: Male
  Weight: 85 kg

DRUGS (16)
  1. CARBOPLATIN [Suspect]
     Active Substance: CARBOPLATIN
     Indication: Lung adenocarcinoma stage IV
     Route: 042
     Dates: start: 20241205, end: 20241226
  2. CARBOPLATIN [Suspect]
     Active Substance: CARBOPLATIN
     Route: 042
     Dates: start: 20250116
  3. CARBOPLATIN [Suspect]
     Active Substance: CARBOPLATIN
     Route: 042
     Dates: start: 20250210
  4. CARBOPLATIN [Suspect]
     Active Substance: CARBOPLATIN
     Route: 042
     Dates: start: 20250321
  5. PEMETREXED [Suspect]
     Active Substance: PEMETREXED
     Indication: Lung adenocarcinoma stage IV
     Route: 042
     Dates: start: 20241205, end: 20241226
  6. PEMETREXED [Suspect]
     Active Substance: PEMETREXED
     Route: 042
     Dates: start: 20250116
  7. PEMETREXED [Suspect]
     Active Substance: PEMETREXED
     Route: 042
     Dates: start: 20250210
  8. PEMETREXED [Suspect]
     Active Substance: PEMETREXED
     Route: 042
     Dates: start: 20250221
  9. RYBREVANT [Suspect]
     Active Substance: AMIVANTAMAB-VMJW
     Indication: Lung adenocarcinoma stage IV
     Route: 042
     Dates: start: 20241205, end: 20241226
  10. RYBREVANT [Suspect]
     Active Substance: AMIVANTAMAB-VMJW
     Route: 042
     Dates: start: 20250116
  11. RYBREVANT [Suspect]
     Active Substance: AMIVANTAMAB-VMJW
     Route: 042
     Dates: start: 20250210
  12. RYBREVANT [Suspect]
     Active Substance: AMIVANTAMAB-VMJW
     Route: 042
     Dates: start: 20250321
  13. EMEND [Concomitant]
     Active Substance: APREPITANT
     Indication: Product used for unknown indication
     Route: 065
  14. LANSOPRAZOLE [Concomitant]
     Active Substance: LANSOPRAZOLE
     Indication: Product used for unknown indication
     Route: 065
  15. PREDNISONE [Concomitant]
     Active Substance: PREDNISONE
     Indication: Product used for unknown indication
     Route: 065
  16. ONDANSETRON [Concomitant]
     Active Substance: ONDANSETRON
     Indication: Product used for unknown indication
     Route: 065

REACTIONS (1)
  - Hypokalaemia [Recovered/Resolved]

NARRATIVE: CASE EVENT DATE: 20250219
